FAERS Safety Report 10157061 (Version 2)
Quarter: 2014Q2

REPORT INFORMATION
  Report Type: Spontaneous
  Country: US (occurrence: US)
  Receive Date: 20140507
  Receipt Date: 20140514
  Transmission Date: 20141212
  Serious: No
  Sender: FDA-Public Use
  Company Number: US-PFIZER INC-2014122776

PATIENT
  Age: 68 Year
  Sex: Male

DRUGS (2)
  1. DEPO-TESTOSTERONE [Suspect]
     Dosage: 200 MG, CYCLIC (EVERY 2 WEEKS)
     Dates: start: 2010
  2. DEPO-TESTOSTERONE [Suspect]
     Dosage: 300 MG, EVERY 3 WEEKS

REACTIONS (1)
  - Drug ineffective [Unknown]
